FAERS Safety Report 19610431 (Version 1)
Quarter: 2021Q3

REPORT INFORMATION
  Report Type: Spontaneous
  Country: IT (occurrence: IT)
  Receive Date: 20210726
  Receipt Date: 20210726
  Transmission Date: 20211014
  Serious: Yes (Other)
  Sender: FDA-Public Use
  Company Number: IT-BAYER-2021-177523

PATIENT
  Age: 35 Year
  Sex: Male

DRUGS (4)
  1. CIPROFLOXACIN. [Suspect]
     Active Substance: CIPROFLOXACIN
     Indication: EPIDIDYMITIS
  2. REAGILA [Interacting]
     Active Substance: CARIPRAZINE
     Indication: DEPRESSION
     Route: 048
  3. LEVOFLOXACIN. [Interacting]
     Active Substance: LEVOFLOXACIN
     Indication: EPIDIDYMITIS
     Dosage: UNK
  4. IBUPROFEN. [Interacting]
     Active Substance: IBUPROFEN
     Indication: EPIDIDYMITIS
     Dosage: UNK

REACTIONS (4)
  - Off label use [Not Recovered/Not Resolved]
  - Epididymitis [Unknown]
  - Drug ineffective [Not Recovered/Not Resolved]
  - Drug interaction [Recovered/Resolved]
